FAERS Safety Report 8186595-3 (Version None)
Quarter: 2012Q1

REPORT INFORMATION
  Report Type: 
  Country: None (occurrence: None)
  Receive Date: 20120306
  Receipt Date: 20120227
  Transmission Date: 20120608
  Serious: No
  Sender: FDA-Public Use
  Company Number: TR-UCBSA-051168

PATIENT
  Age: 21 Year
  Sex: Male

DRUGS (2)
  1. PHENYTOIN [Concomitant]
     Indication: CONVULSION
  2. KEPPRA [Suspect]
     Indication: CONVULSION
     Route: 042

REACTIONS (1)
  - LEUKOPENIA [None]
